FAERS Safety Report 25047929 (Version 4)
Quarter: 2025Q2

REPORT INFORMATION
  Report Type: Report from Study
  Country: CA (occurrence: CA)
  Receive Date: 20250306
  Receipt Date: 20250421
  Transmission Date: 20250717
  Serious: Yes (Other)
  Sender: TAKEDA
  Company Number: CA-TAKEDA-2025TUS023060

PATIENT
  Age: 46 Year
  Sex: Male

DRUGS (5)
  1. VEDOLIZUMAB [Suspect]
     Active Substance: VEDOLIZUMAB
     Indication: Colitis ulcerative
  2. VEDOLIZUMAB [Suspect]
     Active Substance: VEDOLIZUMAB
     Dosage: 300 MILLIGRAM, Q4WEEKS
     Dates: start: 20250326, end: 20250326
  3. IMURAN [Concomitant]
     Active Substance: AZATHIOPRINE
     Dosage: 150 MILLIGRAM, QD
     Dates: start: 202201
  4. IMURAN [Concomitant]
     Active Substance: AZATHIOPRINE
  5. SERTRALINE [Concomitant]
     Active Substance: SERTRALINE HYDROCHLORIDE

REACTIONS (3)
  - Colitis ulcerative [Unknown]
  - Off label use [Unknown]
  - Loss of therapeutic response [Unknown]

NARRATIVE: CASE EVENT DATE: 20250326
